FAERS Safety Report 5011913-4 (Version None)
Quarter: 2006Q2

REPORT INFORMATION
  Report Type: 
  Country: None (occurrence: None)
  Receive Date: 20060524
  Receipt Date: 20060524
  Transmission Date: 20061013
  Serious: Yes (Hospitalization)
  Sender: FDA-Public Use
  Company Number: None

PATIENT
  Age: 64 Year
  Sex: Male
  Weight: 75 kg

DRUGS (2)
  1. FUROSEMIDE [Suspect]
     Indication: HYPERTENSION
     Dosage: 240 MG BID PO
     Route: 048
     Dates: start: 19971224, end: 20060204
  2. SPIRONOLACTONE [Suspect]
     Indication: HYPERTENSION
     Dosage: 25 MG DAILY PO
     Route: 048
     Dates: start: 20051220, end: 20060204

REACTIONS (7)
  - ASCITES [None]
  - FLUID OVERLOAD [None]
  - HYPERKALAEMIA [None]
  - LEFT VENTRICULAR FAILURE [None]
  - POLYURIA [None]
  - PULMONARY HYPERTENSION [None]
  - RENAL FAILURE ACUTE [None]
